FAERS Safety Report 17672449 (Version 1)
Quarter: 2020Q2

REPORT INFORMATION
  Report Type: Spontaneous
  Country: DE (occurrence: DE)
  Receive Date: 20200415
  Receipt Date: 20200415
  Transmission Date: 20200713
  Serious: Yes (Hospitalization)
  Sender: FDA-Public Use
  Company Number: DE-SHIRE-DE202013306

PATIENT

DRUGS (5)
  1. RISPERIDONE. [Concomitant]
     Active Substance: RISPERIDONE
     Indication: MENTAL IMPAIRMENT
  2. INTUNIV [Suspect]
     Active Substance: GUANFACINE HYDROCHLORIDE
     Indication: ATTENTION DEFICIT HYPERACTIVITY DISORDER
     Dosage: 6 MILLIGRAM, 1X/DAY:QD
     Route: 048
     Dates: start: 2018, end: 20190827
  3. RISPERIDONE. [Concomitant]
     Active Substance: RISPERIDONE
     Indication: AGGRESSION
     Dosage: UNK
  4. LEVOMEPROMAZINE [Concomitant]
     Active Substance: LEVOMEPROMAZINE
     Indication: PSYCHOMOTOR HYPERACTIVITY
     Dosage: UNK
  5. ATTENTIN [ATOMOXETINE HYDROCHLORIDE] [Concomitant]
     Indication: ATTENTION DEFICIT HYPERACTIVITY DISORDER
     Dosage: UNK

REACTIONS (2)
  - Tachycardia [Recovered/Resolved]
  - Hyperkinesia [Unknown]

NARRATIVE: CASE EVENT DATE: 20190605
